FAERS Safety Report 16039800 (Version 1)
Quarter: 2019Q2

REPORT INFORMATION
  Report Type: Spontaneous
  Country: US (occurrence: US)
  Receive Date: 20190305
  Receipt Date: 20190305
  Transmission Date: 20190711
  Serious: Yes (Disabling)
  Sender: FDA-Public Use
  Company Number: None

PATIENT
  Sex: Male
  Weight: 135 kg

DRUGS (1)
  1. LEVAQUIN [Suspect]
     Active Substance: LEVOFLOXACIN
     Indication: INFECTION
     Dosage: ?          OTHER ROUTE:SEVERAL IV^S THEN BY PILL FOR 10 DAYS?
     Dates: start: 20050404, end: 20050414

REACTIONS (5)
  - Muscle tightness [None]
  - Mobility decreased [None]
  - Skin fragility [None]
  - Neuropathy peripheral [None]
  - Tendon disorder [None]
